FAERS Safety Report 4636756-2 (Version None)
Quarter: 2005Q2

REPORT INFORMATION
  Report Type: 
  Country: None (occurrence: None)
  Receive Date: 20050414
  Receipt Date: 20050401
  Transmission Date: 20051028
  Serious: Yes (Other)
  Sender: FDA-Public Use
  Company Number: 2005051541

PATIENT
  Sex: Female
  Weight: 72.5755 kg

DRUGS (4)
  1. BEXTRA [Suspect]
     Indication: OSTEOARTHRITIS
     Dosage: 10 MG (10  MG, 1 IN 1 D), ORAL
     Route: 048
  2. CELEBREX [Suspect]
     Indication: OSTEOARTHRITIS
     Dosage: ORAL
     Route: 048
  3. CONJUGATED ESTROGENS [Concomitant]
  4. IBUPROFEN [Suspect]
     Indication: SWELLING
     Dosage: ORAL
     Route: 048
     Dates: start: 20050301

REACTIONS (3)
  - ARTHRITIS [None]
  - POST PROCEDURAL COMPLICATION [None]
  - STOMACH DISCOMFORT [None]
